FAERS Safety Report 17585924 (Version 3)
Quarter: 2020Q2

REPORT INFORMATION
  Report Type: Report from Study
  Country: MX (occurrence: MX)
  Receive Date: 20200326
  Receipt Date: 20200602
  Transmission Date: 20200713
  Serious: Yes (Death, Other)
  Sender: FDA-Public Use
  Company Number: MX-UNITED THERAPEUTICS-UNT-2020-004772

PATIENT

DRUGS (1)
  1. ORAL TREPROSTINIL [Suspect]
     Active Substance: TREPROSTINIL
     Indication: PULMONARY ARTERIAL HYPERTENSION
     Dosage: UNK
     Route: 048
     Dates: start: 20070830

REACTIONS (2)
  - Coma [Unknown]
  - Cerebral haemorrhage [Fatal]

NARRATIVE: CASE EVENT DATE: 202001
